FAERS Safety Report 4273642-4 (Version None)
Quarter: 2004Q1

REPORT INFORMATION
  Report Type: 
  Country: None (occurrence: None)
  Receive Date: 20040119
  Receipt Date: 20031125
  Transmission Date: 20041129
  Serious: Yes (Hospitalization)
  Sender: FDA-Public Use
  Company Number: WAES 0312USA00076

PATIENT
  Age: 60 Year
  Sex: Female

DRUGS (7)
  1. VICODIN [Concomitant]
  2. ALBUTEROL [Concomitant]
  3. BUMEX [Concomitant]
  4. NEXIUM [Concomitant]
  5. FLONASE [Concomitant]
  6. MAXZIDE [Concomitant]
  7. VIOXX [Suspect]
     Route: 048

REACTIONS (4)
  - HYPERSENSITIVITY [None]
  - HYPOXIA [None]
  - PULMONARY OEDEMA [None]
  - RESPIRATORY DISTRESS [None]
